FAERS Safety Report 12475603 (Version 4)
Quarter: 2016Q4

REPORT INFORMATION
  Report Type: Spontaneous
  Country: JP (occurrence: JP)
  Receive Date: 20160617
  Receipt Date: 20161216
  Transmission Date: 20170207
  Serious: Yes (Hospitalization, Other)
  Sender: FDA-Public Use
  Company Number: JP-009507513-1606JPN005356

PATIENT
  Age: 73 Year
  Sex: Male
  Weight: 67 kg

DRUGS (103)
  1. NEUROTROPIN [Concomitant]
     Active Substance: NEUROTROPIN
     Dosage: 1 DF, UNK
     Route: 051
     Dates: start: 20160524, end: 20160524
  2. NEUROTROPIN [Concomitant]
     Active Substance: NEUROTROPIN
     Dosage: 2 DF, UNK
     Route: 051
     Dates: start: 20160525, end: 20160525
  3. NITROPEN [Concomitant]
     Active Substance: NITROGLYCERIN
     Dosage: 0.3 MG, PRN
     Route: 060
     Dates: start: 20160525, end: 20160525
  4. ATARAX [Concomitant]
     Active Substance: HYDROXYZINE\HYDROXYZINE HYDROCHLORIDE
     Dosage: 1 DF, UNK
     Route: 051
     Dates: start: 20160522, end: 20160522
  5. ATARAX [Concomitant]
     Active Substance: HYDROXYZINE\HYDROXYZINE HYDROCHLORIDE
     Dosage: 2 DF, UNK
     Route: 051
     Dates: start: 20160530, end: 20160530
  6. BIOFERMIN R [Concomitant]
     Active Substance: BACILLUS SUBTILIS\LACTOBACILLUS ACIDOPHILUS\STREPTOCOCCUS FAECAIS
     Dosage: 3 DF, UNK
     Route: 048
     Dates: start: 20160427, end: 20160509
  7. JANUVIA [Suspect]
     Active Substance: SITAGLIPTIN PHOSPHATE
     Dosage: UNK
     Route: 048
     Dates: start: 20160602, end: 20160610
  8. TAZOPIPE [Suspect]
     Active Substance: PIPERACILLIN SODIUM\TAZOBACTAM SODIUM
     Dosage: 1 DF, UNK
     Route: 042
     Dates: start: 20160523, end: 20160523
  9. TAZOPIPE [Suspect]
     Active Substance: PIPERACILLIN SODIUM\TAZOBACTAM SODIUM
     Dosage: 4 DF, UNK
     Route: 042
     Dates: start: 20160524, end: 20160524
  10. UBRETID [Concomitant]
     Active Substance: DISTIGMINE BROMIDE
     Dosage: 5 MG, UNK
     Route: 048
     Dates: start: 20160503, end: 20160517
  11. VASOLAN [Concomitant]
     Active Substance: VERAPAMIL HYDROCHLORIDE
     Dosage: 40 MG, UNK
     Route: 048
     Dates: start: 20160425, end: 20160523
  12. AMOBANTES [Concomitant]
     Dosage: 7.5 MG, PRN
     Route: 048
     Dates: start: 20160518, end: 20160518
  13. LACTEC [Concomitant]
     Active Substance: CALCIUM CHLORIDE ANHYDROUS\POTASSIUM CHLORIDE\SODIUM CHLORIDE\SODIUM LACTATE
     Dosage: 500 ML, UNK
     Route: 051
     Dates: start: 20160521, end: 20160521
  14. INTRALIPOS [Concomitant]
     Active Substance: SOYBEAN OIL
     Dosage: 200 ML, UNK
     Route: 051
     Dates: start: 20160528, end: 20160528
  15. ELIETEN [Concomitant]
     Active Substance: METOCLOPRAMIDE
     Dosage: 1 DF, UNK
     Dates: start: 20160527, end: 20160527
  16. SERENACE [Concomitant]
     Active Substance: HALOPERIDOL
     Dosage: 1 DF, UNK
     Route: 051
     Dates: start: 20160529, end: 20160529
  17. ATARAX [Concomitant]
     Active Substance: HYDROXYZINE\HYDROXYZINE HYDROCHLORIDE
     Dosage: 1 DF, UNK
     Route: 051
     Dates: start: 20160520, end: 20160520
  18. NEUROTROPIN [Concomitant]
     Active Substance: NEUROTROPIN
     Dosage: 2 DF, UNK
     Route: 051
     Dates: start: 20160516, end: 20160516
  19. NEUROTROPIN [Concomitant]
     Active Substance: NEUROTROPIN
     Dosage: 3 DF, UNK
     Route: 051
     Dates: start: 20160528, end: 20160528
  20. NAUZELIN [Concomitant]
     Active Substance: DOMPERIDONE
     Dosage: 5 DF, PRN
     Route: 054
     Dates: start: 20160517, end: 20160517
  21. ATROPINE. [Concomitant]
     Active Substance: ATROPINE
     Dosage: 0.5 DF, UNK
     Route: 051
     Dates: start: 20160523, end: 20160523
  22. ATARAX [Concomitant]
     Active Substance: HYDROXYZINE\HYDROXYZINE HYDROCHLORIDE
     Dosage: 1 DF, UNK
     Route: 051
     Dates: start: 20160516, end: 20160516
  23. BUSCOPAN [Concomitant]
     Active Substance: BUTYLSCOPOLAMINE BROMIDE
     Dosage: 1 DF, UNK
     Route: 051
     Dates: start: 20160514, end: 20160514
  24. ATARAX [Concomitant]
     Active Substance: HYDROXYZINE\HYDROXYZINE HYDROCHLORIDE
     Dosage: 3 DF, UNK
     Route: 051
     Dates: start: 20160524, end: 20160524
  25. ATARAX [Concomitant]
     Active Substance: HYDROXYZINE\HYDROXYZINE HYDROCHLORIDE
     Dosage: 1 DF, UNK
     Route: 051
     Dates: start: 20160526, end: 20160526
  26. ATARAX [Concomitant]
     Active Substance: HYDROXYZINE\HYDROXYZINE HYDROCHLORIDE
     Dosage: 2 DF, UNK
     Route: 051
     Dates: start: 20160530, end: 20160530
  27. HEPARIN SODIUM. [Concomitant]
     Active Substance: HEPARIN SODIUM
     Dosage: 3 DF, UNK
     Route: 051
     Dates: start: 20160524, end: 20160524
  28. NEUROTROPIN [Concomitant]
     Active Substance: NEUROTROPIN
     Dosage: 1 DF, UNK
     Route: 051
     Dates: start: 20160510, end: 20160510
  29. NEUROTROPIN [Concomitant]
     Active Substance: NEUROTROPIN
     Dosage: 2 DF, UNK
     Route: 051
     Dates: start: 20160530, end: 20160530
  30. POTASSIUM CHLORIDE. [Concomitant]
     Active Substance: POTASSIUM CHLORIDE
     Dosage: 1 DF, UNK
     Route: 051
     Dates: start: 20160523, end: 20160523
  31. NEXIUM [Concomitant]
     Active Substance: ESOMEPRAZOLE MAGNESIUM
     Dosage: 20 MG, UNK
     Route: 048
     Dates: start: 20160530
  32. ATARAX [Concomitant]
     Active Substance: HYDROXYZINE\HYDROXYZINE HYDROCHLORIDE
     Dosage: 3 DF, UNK
     Route: 051
     Dates: start: 20160524, end: 20160524
  33. ATARAX [Concomitant]
     Active Substance: HYDROXYZINE\HYDROXYZINE HYDROCHLORIDE
     Dosage: 1 DF, UNK
     Route: 051
     Dates: start: 20160526, end: 20160526
  34. LASIX [Concomitant]
     Active Substance: FUROSEMIDE
     Dosage: 1 DF, UNK
     Route: 051
     Dates: start: 20160524, end: 20160524
  35. VASOLAN [Concomitant]
     Active Substance: VERAPAMIL HYDROCHLORIDE
     Dosage: 40 MG, UNK
     Route: 048
     Dates: start: 20160528
  36. CALONAL [Concomitant]
     Active Substance: ACETAMINOPHEN
     Dosage: 2400 MG, UNK
     Route: 048
     Dates: start: 20160525
  37. NIFELANTERN CR [Concomitant]
     Active Substance: NIFEDIPINE
     Dosage: 40 MG, UNK
     Route: 048
     Dates: start: 20160507, end: 20160523
  38. ELIETEN [Concomitant]
     Active Substance: METOCLOPRAMIDE
     Dosage: 15 MG, UNK
     Route: 048
     Dates: start: 20160516, end: 20160518
  39. BFLUID [Concomitant]
     Active Substance: AMINO ACIDS\DEXTROSE\ELECTROLYTES NOS\VITAMINS
     Dosage: 1000 ML, UNK
     Route: 051
     Dates: start: 20160515, end: 20160515
  40. BFLUID [Concomitant]
     Active Substance: AMINO ACIDS\DEXTROSE\ELECTROLYTES NOS\VITAMINS
     Dosage: 500 ML, UNK
     Route: 051
     Dates: start: 20160521, end: 20160521
  41. INTRALIPOS [Concomitant]
     Active Substance: SOYBEAN OIL
     Dosage: 200 ML, UNK
     Route: 051
     Dates: start: 20160520, end: 20160521
  42. ATARAX [Concomitant]
     Active Substance: HYDROXYZINE\HYDROXYZINE HYDROCHLORIDE
     Dosage: 2 DF, UNK
     Route: 051
     Dates: start: 20160523, end: 20160523
  43. CEFMETAZOLE SODIUM [Concomitant]
     Active Substance: CEFMETAZOLE SODIUM
     Dosage: 1.5 G, UNK
     Route: 051
     Dates: start: 20160523, end: 20160523
  44. HEPARIN SODIUM. [Concomitant]
     Active Substance: HEPARIN SODIUM
     Dosage: 1.5 DF, UNK
     Route: 051
     Dates: start: 20160523, end: 20160523
  45. VASOLAN [Concomitant]
     Active Substance: VERAPAMIL HYDROCHLORIDE
     Dosage: 1 DF, UNK
     Route: 051
     Dates: start: 20160517, end: 20160517
  46. NEUROTROPIN [Concomitant]
     Active Substance: NEUROTROPIN
     Dosage: 1 DF, UNK
     Route: 051
     Dates: start: 20160529, end: 20160529
  47. LASIX [Concomitant]
     Active Substance: FUROSEMIDE
     Dosage: 1 DF, UNK
     Route: 051
     Dates: start: 20160530, end: 20160530
  48. MOHRUS [Concomitant]
     Active Substance: KETOPROFEN
     Dosage: 1 DF, UNK
     Route: 061
     Dates: start: 20160526
  49. SODIUM CHLORIDE BAXTER [Concomitant]
     Dosage: 500 ML, UNK
     Route: 051
     Dates: start: 20160523, end: 20160523
  50. LANZOPRAZOL [Suspect]
     Active Substance: LANSOPRAZOLE
     Dosage: 15 MG, UNK
     Route: 048
     Dates: start: 20160429, end: 20160524
  51. WARFARIN [Concomitant]
     Active Substance: WARFARIN
     Dosage: 1.5 MG, UNK
     Route: 048
     Dates: start: 20160526
  52. CALONAL [Concomitant]
     Active Substance: ACETAMINOPHEN
     Dosage: 2400 MG, UNK
     Route: 048
     Dates: start: 20160518, end: 20160523
  53. DEPAKENE [Concomitant]
     Active Substance: VALPROIC ACID
     Dosage: 400 MG, UNK
     Route: 048
     Dates: start: 20160426, end: 20160523
  54. LACTEC [Concomitant]
     Active Substance: CALCIUM CHLORIDE ANHYDROUS\POTASSIUM CHLORIDE\SODIUM CHLORIDE\SODIUM LACTATE
     Dosage: 1000 ML, UNK
     Route: 051
     Dates: start: 20160524, end: 20160524
  55. OMEPRAZOLE. [Concomitant]
     Active Substance: OMEPRAZOLE
     Dosage: 2 DF, UNK
     Route: 051
     Dates: start: 20160523, end: 20160523
  56. ELIETEN [Concomitant]
     Active Substance: METOCLOPRAMIDE
     Dosage: 1 DF, UNK
     Route: 051
     Dates: start: 20160515, end: 20160515
  57. SERENACE [Concomitant]
     Active Substance: HALOPERIDOL
     Dosage: 1 DF, UNK
     Route: 051
     Dates: start: 20160523, end: 20160523
  58. ATARAX [Concomitant]
     Active Substance: HYDROXYZINE\HYDROXYZINE HYDROCHLORIDE
     Dosage: 1 DF, UNK
     Route: 051
     Dates: start: 20160529, end: 20160529
  59. NAUZELIN [Concomitant]
     Active Substance: DOMPERIDONE
     Dosage: 10 DF, PRN
     Route: 054
     Dates: start: 20160519, end: 20160519
  60. ATARAX [Concomitant]
     Active Substance: HYDROXYZINE\HYDROXYZINE HYDROCHLORIDE
     Dosage: 1 DF, UNK
     Route: 051
     Dates: start: 20160520, end: 20160520
  61. ASPARA POTASSIUM [Concomitant]
     Active Substance: POTASSIUM ASPARTATE
     Dosage: 0.9 G, UNK
     Route: 048
     Dates: start: 20160507, end: 20160509
  62. SODIUM CHLORIDE BAXTER [Concomitant]
     Dosage: 1000 ML, UNK
     Route: 051
     Dates: start: 20160524, end: 20160524
  63. MYOCOR [Concomitant]
     Active Substance: NITROGLYCERIN
     Dosage: 100 ML, UNK
     Route: 051
     Dates: start: 20160530, end: 20160530
  64. JANUVIA [Suspect]
     Active Substance: SITAGLIPTIN PHOSPHATE
     Dosage: 12.5 MG, UNK
     Route: 048
     Dates: start: 20160324, end: 20160423
  65. JANUVIA [Suspect]
     Active Substance: SITAGLIPTIN PHOSPHATE
     Dosage: 50 MG, UNK
     Route: 048
     Dates: start: 20160502, end: 20160524
  66. LYRICA [Concomitant]
     Active Substance: PREGABALIN
     Dosage: 75 MG, UNK
     Route: 048
     Dates: start: 20160510, end: 20160516
  67. METLIGINE [Concomitant]
     Active Substance: MIDODRINE HYDROCHLORIDE
     Dosage: 2 MG, UNK
     Route: 048
     Dates: start: 20160427, end: 20160524
  68. NOVAMIN (PROCHLORPERAZINE MALEATE) [Concomitant]
     Active Substance: PROCHLORPERAZINE MALEATE
     Dosage: 15 MG, UNK
     Route: 048
     Dates: start: 20160518, end: 20160519
  69. BFLUID [Concomitant]
     Active Substance: AMINO ACIDS\DEXTROSE\ELECTROLYTES NOS\VITAMINS
     Dosage: 500 ML, UNK
     Route: 051
     Dates: start: 20160516, end: 20160516
  70. BUSCOPAN [Concomitant]
     Active Substance: BUTYLSCOPOLAMINE BROMIDE
     Dosage: 1 DF, UNK
     Route: 051
     Dates: start: 20160517, end: 20160517
  71. SERENACE [Concomitant]
     Active Substance: HALOPERIDOL
     Dosage: 1 DF, UNK
     Route: 051
     Dates: start: 20160526, end: 20160526
  72. SERENACE [Concomitant]
     Active Substance: HALOPERIDOL
     Dosage: 2 DF, UNK
     Route: 051
     Dates: start: 20160530, end: 20160530
  73. ATARAX [Concomitant]
     Active Substance: HYDROXYZINE\HYDROXYZINE HYDROCHLORIDE
     Dosage: 1 DF, UNK
     Route: 051
     Dates: start: 20160516, end: 20160516
  74. HEPARIN SODIUM. [Concomitant]
     Active Substance: HEPARIN SODIUM
     Dosage: 2.6 DF, UNK
     Route: 051
     Dates: start: 20160526, end: 20160526
  75. NEUROTROPIN [Concomitant]
     Active Substance: NEUROTROPIN
     Dosage: 1 DF, UNK
     Route: 051
     Dates: start: 20160517, end: 20160517
  76. NEUROTROPIN [Concomitant]
     Active Substance: NEUROTROPIN
     Dosage: 2 DF, UNK
     Route: 051
     Dates: start: 20160522, end: 20160522
  77. NOVAMIN (AMIKACIN SULFATE) [Concomitant]
     Active Substance: AMIKACIN SULFATE
     Dosage: 15 MG, UNK
     Route: 048
     Dates: start: 20160518, end: 20160519
  78. ATARAX [Concomitant]
     Active Substance: HYDROXYZINE\HYDROXYZINE HYDROCHLORIDE
     Dosage: 2 DF, UNK
     Route: 051
     Dates: start: 20160517, end: 20160517
  79. ACELIO [Concomitant]
     Active Substance: ACETAMINOPHEN
     Dosage: 0.6 DF, UNK
     Route: 051
     Dates: start: 20160524, end: 20160524
  80. MYOCOR [Concomitant]
     Active Substance: NITROGLYCERIN
     Dosage: 1 DF, PRN
     Route: 060
     Dates: start: 20160530, end: 20160530
  81. VASOLAN [Concomitant]
     Active Substance: VERAPAMIL HYDROCHLORIDE
     Dosage: 20 MG, UNK
     Route: 048
     Dates: start: 20160527, end: 20160527
  82. BFLUID [Concomitant]
     Active Substance: AMINO ACIDS\DEXTROSE\ELECTROLYTES NOS\VITAMINS
     Dosage: 1000 ML, UNK
     Route: 051
     Dates: start: 20160523, end: 20160523
  83. BFLUID [Concomitant]
     Active Substance: AMINO ACIDS\DEXTROSE\ELECTROLYTES NOS\VITAMINS
     Dosage: 1000 ML, UNK
     Route: 051
     Dates: start: 20160526, end: 20160526
  84. LACTEC [Concomitant]
     Active Substance: CALCIUM CHLORIDE ANHYDROUS\POTASSIUM CHLORIDE\SODIUM CHLORIDE\SODIUM LACTATE
     Dosage: 500 ML, UNK
     Route: 051
     Dates: start: 20160516, end: 20160516
  85. LACTEC [Concomitant]
     Active Substance: CALCIUM CHLORIDE ANHYDROUS\POTASSIUM CHLORIDE\SODIUM CHLORIDE\SODIUM LACTATE
     Dosage: 500 ML, UNK
     Route: 051
     Dates: start: 20160525, end: 20160525
  86. INTRALIPOS [Concomitant]
     Active Substance: SOYBEAN OIL
     Dosage: 100 ML, UNK
     Route: 051
     Dates: start: 20160516, end: 20160516
  87. INTRALIPOS [Concomitant]
     Active Substance: SOYBEAN OIL
     Dosage: 100 ML, UNK
     Route: 051
     Dates: start: 20160527, end: 20160527
  88. ELIETEN [Concomitant]
     Active Substance: METOCLOPRAMIDE
     Dosage: 2 DF, UNK
     Route: 051
     Dates: start: 20160514, end: 20160514
  89. HEPARIN SODIUM. [Concomitant]
     Active Substance: HEPARIN SODIUM
     Dosage: 2.5 DF, UNK
     Route: 051
     Dates: start: 20160525, end: 20160525
  90. ATROPINE SULFATE. [Concomitant]
     Active Substance: ATROPINE SULFATE
     Dosage: 0.5 DF, UNK
     Route: 051
     Dates: start: 20160523, end: 20160523
  91. BESACOLIN [Concomitant]
     Active Substance: BETHANECHOL CHLORIDE
     Dosage: 45 MG, UNK
     Route: 048
     Dates: start: 20160503, end: 20160523
  92. WARFARIN [Concomitant]
     Active Substance: WARFARIN
     Dosage: 1.5 MG, UNK
     Route: 048
     Dates: start: 20160507, end: 20160523
  93. NEUROTROPIN [Concomitant]
     Active Substance: NEUROTROPIN
     Dosage: 16 IU, UNK
     Route: 048
     Dates: start: 20160506, end: 20160523
  94. LACTEC [Concomitant]
     Active Substance: CALCIUM CHLORIDE ANHYDROUS\POTASSIUM CHLORIDE\SODIUM CHLORIDE\SODIUM LACTATE
     Dosage: 2500 ML, UNK
     Route: 051
     Dates: start: 20160523, end: 20160523
  95. ELIETEN [Concomitant]
     Active Substance: METOCLOPRAMIDE
     Dosage: 1 DF, UNK
     Route: 051
     Dates: start: 20160522, end: 20160522
  96. ATARAX [Concomitant]
     Active Substance: HYDROXYZINE\HYDROXYZINE HYDROCHLORIDE
     Dosage: 2 DF, UNK
     Route: 051
     Dates: start: 20160517, end: 20160517
  97. ATARAX [Concomitant]
     Active Substance: HYDROXYZINE\HYDROXYZINE HYDROCHLORIDE
     Dosage: 1 DF, UNK
     Route: 051
     Dates: start: 20160522, end: 20160522
  98. VASOLAN [Concomitant]
     Active Substance: VERAPAMIL HYDROCHLORIDE
     Dosage: 1 DF, UNK
     Route: 051
     Dates: start: 20160526, end: 20160526
  99. ELIETEN [Concomitant]
     Active Substance: METOCLOPRAMIDE
     Dosage: 1 DF, UNK
     Route: 051
     Dates: start: 20160517, end: 20160517
  100. NEUROTROPIN [Concomitant]
     Active Substance: NEUROTROPIN
     Dosage: 1 DF, UNK
     Route: 051
     Dates: start: 20160515, end: 20160515
  101. NAUZELIN [Concomitant]
     Active Substance: DOMPERIDONE
     Dosage: 3 DF, PRN
     Route: 054
     Dates: start: 20160515, end: 20160515
  102. ATARAX [Concomitant]
     Active Substance: HYDROXYZINE\HYDROXYZINE HYDROCHLORIDE
     Dosage: 2 DF, UNK
     Route: 051
     Dates: start: 20160523, end: 20160523
  103. ATARAX [Concomitant]
     Active Substance: HYDROXYZINE\HYDROXYZINE HYDROCHLORIDE
     Dosage: 1 DF, UNK
     Route: 051
     Dates: start: 20160529, end: 20160529

REACTIONS (2)
  - Interstitial lung disease [Recovering/Resolving]
  - Pneumonia aspiration [Recovered/Resolved]

NARRATIVE: CASE EVENT DATE: 20160523
